FAERS Safety Report 16466616 (Version 2)
Quarter: 2019Q2

REPORT INFORMATION
  Report Type: Spontaneous
  Country: US (occurrence: US)
  Receive Date: 20190623
  Receipt Date: 20190627
  Transmission Date: 20190711
  Serious: Yes (Hospitalization, Other)
  Sender: FDA-Public Use
  Company Number: US-009507513-1906USA007133

PATIENT
  Age: 56 Year
  Sex: Male
  Weight: 80.6 kg

DRUGS (3)
  1. ZEPATIER [Suspect]
     Active Substance: ELBASVIR\GRAZOPREVIR
     Indication: HEPATITIS C
     Dosage: 1, 1/DAY
     Route: 048
     Dates: start: 20180320, end: 20180419
  2. HYDROCHLOROTHIAZIDE. [Concomitant]
     Active Substance: HYDROCHLOROTHIAZIDE
  3. SILDENAFIL CITRATE. [Concomitant]
     Active Substance: SILDENAFIL CITRATE

REACTIONS (11)
  - Humerus fracture [Unknown]
  - Fractured zygomatic arch elevation [Unknown]
  - Jaw fracture [Unknown]
  - Cognitive disorder [Unknown]
  - Facial bones fracture [Unknown]
  - Ulna fracture [Unknown]
  - Joint dislocation [Unknown]
  - Road traffic accident [Unknown]
  - Craniocerebral injury [Unknown]
  - Tibia fracture [Unknown]
  - Femur fracture [Unknown]

NARRATIVE: CASE EVENT DATE: 20180419
